FAERS Safety Report 8617888-0 (Version None)
Quarter: 2012Q3

REPORT INFORMATION
  Report Type: 
  Country: None (occurrence: None)
  Receive Date: 20120824
  Receipt Date: 20120322
  Transmission Date: 20120928
  Serious: No
  Sender: FDA-Public Use
  Company Number: US-ASTRAZENECA-2012SE19939

PATIENT
  Age: 47 Year
  Sex: Female

DRUGS (2)
  1. VENTOLIN [Concomitant]
  2. SYMBICORT [Suspect]
     Dosage: UNKNOWN STRENGTH AND FREQUENCY
     Route: 055

REACTIONS (3)
  - DYSPNOEA [None]
  - INTENTIONAL DRUG MISUSE [None]
  - NASOPHARYNGITIS [None]
